FAERS Safety Report 14962331 (Version 1)
Quarter: 2018Q2

REPORT INFORMATION
  Report Type: Spontaneous
  Country: US (occurrence: US)
  Receive Date: 20180601
  Receipt Date: 20180601
  Transmission Date: 20180711
  Serious: No
  Sender: FDA-Public Use
  Company Number: US-BAYER-2018-098626

PATIENT
  Age: 80 Year
  Sex: Male
  Weight: 100 kg

DRUGS (3)
  1. COLACE [Concomitant]
     Active Substance: DOCUSATE SODIUM
     Dosage: UNK UNK, BID
  2. MIRALAX [Suspect]
     Active Substance: POLYETHYLENE GLYCOL 3350
     Indication: CONSTIPATION
     Dosage: 1 DF, QD (17G IN 7OZ APPLE JUICE DAILY A DAY DOSE)
     Route: 048
     Dates: start: 201805
  3. MIRALAX [Suspect]
     Active Substance: POLYETHYLENE GLYCOL 3350
     Indication: GASTROINTESTINAL DISORDER
     Dosage: 1 DF, TID (17G IN 7OZ APPLE JUICE DAILY 3X A DAY DOSE)
     Route: 048
     Dates: start: 201805, end: 201805

REACTIONS (4)
  - Drug prescribing error [Unknown]
  - Product use issue [Unknown]
  - Product prescribing issue [Unknown]
  - Inappropriate schedule of drug administration [Unknown]

NARRATIVE: CASE EVENT DATE: 201805
